FAERS Safety Report 9582666 (Version 1)
Quarter: 2013Q4

REPORT INFORMATION
  Report Type: Spontaneous
  Country: US (occurrence: US)
  Receive Date: 20131002
  Receipt Date: 20131002
  Transmission Date: 20140711
  Serious: No
  Sender: FDA-Public Use
  Company Number: US-AMGEN-USASP2013041838

PATIENT
  Age: 24 Year
  Sex: Female

DRUGS (5)
  1. ENBREL [Suspect]
     Indication: PRODUCT USED FOR UNKNOWN INDICATION
     Dosage: 50 MG, 2 TIMES/WK, FOR 3 MONTHS
     Route: 058
  2. SINGULAIR [Concomitant]
     Dosage: 5 MG,CHW, UNK
  3. FLUTICASONE [Concomitant]
     Dosage: 50 MUG, SPR, UNK
  4. ZYRTEC [Concomitant]
     Dosage: 5 MG, CHW, UNK
  5. LEVORA-28 [Concomitant]
     Dosage: 0.15/30, UNK

REACTIONS (2)
  - Nasal congestion [Unknown]
  - Nasopharyngitis [Unknown]
